FAERS Safety Report 22334263 (Version 1)
Quarter: 2023Q2

REPORT INFORMATION
  Report Type: Spontaneous
  Country: US (occurrence: US)
  Receive Date: 20230517
  Receipt Date: 20230517
  Transmission Date: 20230722
  Serious: No
  Sender: FDA-Public Use
  Company Number: US-NOVOPROD-1005809

PATIENT
  Sex: Female

DRUGS (1)
  1. NORDITROPIN [Suspect]
     Active Substance: SOMATROPIN
     Indication: Pituitary tumour
     Dosage: 0.6 MG 6 DAYS A WEEK
     Route: 058
     Dates: start: 2017

REACTIONS (5)
  - Heart rate increased [Not Recovered/Not Resolved]
  - Breast mass [Unknown]
  - Headache [Not Recovered/Not Resolved]
  - Product storage error [Not Recovered/Not Resolved]
  - Injection site bruising [Not Recovered/Not Resolved]

NARRATIVE: CASE EVENT DATE: 20170101
